FAERS Safety Report 18028945 (Version 1)
Quarter: 2020Q3

REPORT INFORMATION
  Report Type: Spontaneous
  Country: US (occurrence: US)
  Receive Date: 20200716
  Receipt Date: 20200716
  Transmission Date: 20201103
  Serious: Yes (Other)
  Sender: FDA-Public Use
  Company Number: US-009507513-2007USA005811

PATIENT
  Sex: Female

DRUGS (1)
  1. FOSAMAX [Suspect]
     Active Substance: ALENDRONATE SODIUM
     Indication: OSTEOPOROSIS
     Dosage: ONE TABLE ONCE A WEEK
     Route: 048
     Dates: start: 2010, end: 201511

REACTIONS (2)
  - Limb crushing injury [Recovered/Resolved]
  - Fall [Recovered/Resolved]

NARRATIVE: CASE EVENT DATE: 2018
